FAERS Safety Report 8424944-9 (Version None)
Quarter: 2012Q2

REPORT INFORMATION
  Report Type: 
  Country: None (occurrence: None)
  Receive Date: 20120611
  Receipt Date: 20120608
  Transmission Date: 20120825
  Serious: No
  Sender: FDA-Public Use
  Company Number: US-PFIZER INC-2012138705

PATIENT
  Sex: Female
  Weight: 67.574 kg

DRUGS (2)
  1. TOFRANIL [Concomitant]
     Dosage: UNK
  2. XANAX [Suspect]
     Indication: ANXIETY
     Dosage: 0.25 MG, 3X/DAY
     Route: 048
     Dates: start: 19900101

REACTIONS (3)
  - DRUG INEFFECTIVE [None]
  - ANXIETY [None]
  - CONFUSIONAL STATE [None]
